FAERS Safety Report 5525066-7 (Version None)
Quarter: 2007Q4

REPORT INFORMATION
  Report Type: 
  Country: None (occurrence: None)
  Receive Date: 20071120
  Receipt Date: 20071120
  Transmission Date: 20080405
  Serious: No
  Sender: FDA-Public Use
  Company Number: None

PATIENT
  Age: 29 Year
  Sex: Female
  Weight: 68.0396 kg

DRUGS (1)
  1. APRI ORAL CONTRACEPTIVE PILL [Suspect]
     Indication: CONTRACEPTION
     Dosage: DAILY TABLET AS PRE-PACKAGING DISPENSE
     Dates: start: 20030801, end: 20040101

REACTIONS (2)
  - MIGRAINE [None]
  - PREMENSTRUAL SYNDROME [None]
